FAERS Safety Report 10350961 (Version 1)
Quarter: 2014Q3

REPORT INFORMATION
  Report Type: Spontaneous
  Country: GB (occurrence: GB)
  Receive Date: 20140730
  Receipt Date: 20140730
  Transmission Date: 20150326
  Serious: Yes (Life-Threatening)
  Sender: FDA-Public Use
  Company Number: GB-TEVA-495702ISR

PATIENT
  Age: 30 Year
  Sex: Female
  Weight: 75 kg

DRUGS (20)
  1. NAPROXEN. [Concomitant]
     Active Substance: NAPROXEN
     Dates: start: 20140320, end: 20140417
  2. ZEROBASE [Concomitant]
     Dates: start: 20140203, end: 20140428
  3. FELDENE [Concomitant]
     Active Substance: PIROXICAM
     Dates: start: 20140603, end: 20140613
  4. HYOSCINE BUTYLBROMIDE [Concomitant]
     Active Substance: BUTYLSCOPOLAMINE
     Dates: start: 20140422, end: 20140506
  5. METHADONE [Concomitant]
     Active Substance: METHADONE HYDROCHLORIDE
     Dates: start: 20140407, end: 20140417
  6. IBUPROFEN. [Concomitant]
     Active Substance: IBUPROFEN
     Dates: start: 20140417, end: 20140506
  7. NAPROXEN. [Concomitant]
     Active Substance: NAPROXEN
     Dates: start: 20140602, end: 20140626
  8. MIRTAZAPINE. [Concomitant]
     Active Substance: MIRTAZAPINE
     Dates: start: 20140417, end: 20140710
  9. PARACETAMOL [Concomitant]
     Active Substance: ACETAMINOPHEN
     Dates: start: 20140602, end: 20140623
  10. ZOPICLONE [Concomitant]
     Active Substance: ZOPICLONE
     Dates: start: 20140416, end: 20140604
  11. PROMETHAZINE HYDROCHLORIDE. [Concomitant]
     Active Substance: PROMETHAZINE HYDROCHLORIDE
     Dates: start: 20140506, end: 20140509
  12. CITALOPRAM [Concomitant]
     Active Substance: CITALOPRAM HYDROBROMIDE
     Dates: start: 20140305, end: 20140417
  13. CODEINE PHOSPHATE [Concomitant]
     Active Substance: CODEINE PHOSPHATE
     Dates: start: 20140602, end: 20140606
  14. DOMPERIDONE [Concomitant]
     Active Substance: DOMPERIDONE
     Dates: start: 20140422, end: 20140506
  15. DICLOFENAC SODIUM. [Concomitant]
     Active Substance: DICLOFENAC SODIUM
     Dates: start: 20140521, end: 20140604
  16. VITAMIN C [Concomitant]
     Active Substance: ASCORBIC ACID
     Dates: start: 20140131, end: 20140710
  17. ERYTHROMYCIN. [Suspect]
     Active Substance: ERYTHROMYCIN
     Dates: start: 20140710
  18. OTOMIZE [Concomitant]
     Active Substance: DEXAMETHASONE\NEOMYCIN SULFATE
     Dates: start: 20140527, end: 20140603
  19. QUININE [Concomitant]
     Active Substance: QUININE
     Dates: start: 20140423, end: 20140507
  20. VITAMIN D3 [Concomitant]
     Active Substance: CHOLECALCIFEROL
     Dates: start: 20140131, end: 20140710

REACTIONS (2)
  - Dyspnoea [Recovered/Resolved]
  - Swelling [Unknown]

NARRATIVE: CASE EVENT DATE: 20140710
